FAERS Safety Report 18862811 (Version 1)
Quarter: 2021Q1

REPORT INFORMATION
  Report Type: Other
  Country: IN (occurrence: IN)
  Receive Date: 20210208
  Receipt Date: 20210208
  Transmission Date: 20210420
  Serious: Yes (Other)
  Sender: FDA-Public Use
  Company Number: IN-ROCHE-2763598

PATIENT
  Age: 61 Year
  Sex: Male

DRUGS (2)
  1. LABETALOL [Concomitant]
     Active Substance: LABETALOL\LABETALOL HYDROCHLORIDE
     Indication: BLOOD PRESSURE MEASUREMENT
  2. ACTILYSE [Suspect]
     Active Substance: ALTEPLASE
     Indication: THROMBOLYSIS
     Dosage: 50 MG ALTEPLASE, 5 MG GIVEN AS BOLUS AND 45 MG GIVEN AS INFUSION OVER 1 H.
     Route: 065

REACTIONS (4)
  - Aphasia [Unknown]
  - Haemorrhagic transformation stroke [Unknown]
  - Memory impairment [Unknown]
  - Cerebral infarction [Unknown]
